FAERS Safety Report 7752345-5 (Version None)
Quarter: 2011Q3

REPORT INFORMATION
  Report Type: 
  Country: None (occurrence: None)
  Receive Date: 20110915
  Receipt Date: 20110902
  Transmission Date: 20111222
  Serious: No
  Sender: FDA-Public Use
  Company Number: CA-ELI_LILLY_AND_COMPANY-CA201109000630

PATIENT
  Sex: Female

DRUGS (12)
  1. ZYPREXA [Suspect]
     Dosage: 10 MG, QD
  2. ZYPREXA [Suspect]
     Indication: SCHIZOPHRENIA
     Dosage: 2.5 MG, UNK
  3. ZYPREXA [Suspect]
     Dosage: 30 MG, QD
  4. ZYPREXA ZYDIS [Suspect]
     Dosage: 10 MG, UNK
  5. ZYPREXA [Suspect]
     Dosage: 32.5 MG, QD
  6. ZYPREXA ZYDIS [Suspect]
     Indication: SCHIZOPHRENIA
     Dosage: 5 MG, UNK
  7. DIVALPROEX SODIUM [Concomitant]
  8. ZYPREXA [Suspect]
     Dosage: 42.5 MG, QD
  9. RISPERIDONE [Concomitant]
  10. LIPITOR [Concomitant]
  11. ZYPREXA [Suspect]
     Dosage: 20 MG, QD
  12. FLUNARIZINE [Concomitant]

REACTIONS (5)
  - HAEMATOCRIT INCREASED [None]
  - HAEMOGLOBIN INCREASED [None]
  - RED BLOOD CELL COUNT INCREASED [None]
  - OVERDOSE [None]
  - DIABETES MELLITUS [None]
